FAERS Safety Report 5632247-0 (Version None)
Quarter: 2008Q1

REPORT INFORMATION
  Report Type: 
  Country: None (occurrence: None)
  Receive Date: 20080220
  Receipt Date: 20080218
  Transmission Date: 20080703
  Serious: Yes (Hospitalization)
  Sender: FDA-Public Use
  Company Number: US-BAXTER-2008BH001462

PATIENT
  Age: 45 Year
  Sex: Female

DRUGS (3)
  1. HEPARIN LOCK-FLUSH [Suspect]
     Indication: THROMBOSIS PROPHYLAXIS
     Route: 042
  2. HEPARIN LOCK-FLUSH [Suspect]
     Route: 040
  3. HEPARIN LOCK-FLUSH [Suspect]
     Route: 042

REACTIONS (3)
  - CEREBRAL VENOUS THROMBOSIS [None]
  - EMBOLISM VENOUS [None]
  - HEPARIN-INDUCED THROMBOCYTOPENIA [None]
